FAERS Safety Report 7253846-9 (Version None)
Quarter: 2011Q1

REPORT INFORMATION
  Report Type: 
  Country: None (occurrence: None)
  Receive Date: 20110129
  Receipt Date: 20100412
  Transmission Date: 20110831
  Serious: Yes (Other)
  Sender: FDA-Public Use
  Company Number: US-ABBOTT-10P-163-0638755-00

PATIENT
  Sex: Male
  Weight: 95.34 kg

DRUGS (5)
  1. KLONOPIN [Concomitant]
     Indication: INSOMNIA
  2. LIPITOR [Concomitant]
     Indication: PRODUCT USED FOR UNKNOWN INDICATION
  3. OXAPROZIN [Concomitant]
     Indication: ANTIINFLAMMATORY THERAPY
  4. HUMIRA [Suspect]
     Indication: PSORIASIS
     Dates: start: 20081201, end: 20100201
  5. HUMIRA [Suspect]
     Indication: PSORIATIC ARTHROPATHY
     Dates: start: 20100301

REACTIONS (5)
  - FATIGUE [None]
  - ANAEMIA [None]
  - ARTHRALGIA [None]
  - PSORIASIS [None]
  - PAIN IN EXTREMITY [None]
